FAERS Safety Report 23693334 (Version 5)
Quarter: 2024Q3

REPORT INFORMATION
  Report Type: Spontaneous
  Country: US (occurrence: US)
  Receive Date: 20240401
  Receipt Date: 20240910
  Transmission Date: 20241017
  Serious: No
  Sender: PFIZER
  Company Number: US-PFIZER INC-PV202400023474

PATIENT
  Age: 72 Year
  Sex: Male
  Weight: 100.1 kg

DRUGS (13)
  1. BRAFTOVI [Suspect]
     Active Substance: ENCORAFENIB
     Indication: Colorectal cancer metastatic
     Dosage: 300 MG, DAILY (TAKE 4 CAPSULES OF 75 MG, OR 300 MG)
     Route: 048
     Dates: start: 20240201, end: 202402
  2. BRAFTOVI [Suspect]
     Active Substance: ENCORAFENIB
     Dosage: TAKE 3 CAPSULES (225 MG TOTAL) BY MOUTH DAILY. WITH OR WITHOUT FOOD.
     Route: 048
     Dates: start: 20240215
  3. BRAFTOVI [Suspect]
     Active Substance: ENCORAFENIB
     Dosage: TAKE 3 CAPSULES (225 MG TOTAL) BY MOUTH DAILY. WITH OR WITHOUT FOOD.
     Route: 048
     Dates: start: 20240327
  4. BRAFTOVI [Suspect]
     Active Substance: ENCORAFENIB
     Dosage: TAKE 3 CAPSULES (225 MG TOTAL) BY MOUTH DAILY. WITH OR WITHOUT FOOD.
     Route: 048
     Dates: start: 20240523
  5. BRAFTOVI [Suspect]
     Active Substance: ENCORAFENIB
     Dosage: 225 MG, DAILY (TAKE 3 CAPSULES DAILY, WITH OR WITHOUT FOOD)
     Route: 048
     Dates: start: 20240626
  6. BRAFTOVI [Suspect]
     Active Substance: ENCORAFENIB
     Dosage: 225 MG, DAILY, TAKE 3 CAPSULES (225 MG TOTAL) BY MOUTH DAILY. WITH OR WITHOUT FOOD.
     Route: 048
     Dates: start: 20240703
  7. ERBITUX [Suspect]
     Active Substance: CETUXIMAB
     Indication: Colorectal cancer metastatic
     Dosage: 1000 MG (6 OF 12 CYCLES)
     Route: 042
     Dates: start: 20240201
  8. CETUXIMAB [Suspect]
     Active Substance: CETUXIMAB
     Indication: Colorectal cancer metastatic
     Dosage: UNK, BIWEEKLY CETUXIMAB (DOUBLET)
     Dates: start: 20240201
  9. CETUXIMAB [Suspect]
     Active Substance: CETUXIMAB
     Dosage: UNK
     Dates: start: 20240626
  10. REGORAFENIB [Suspect]
     Active Substance: REGORAFENIB
     Indication: Colorectal cancer metastatic
     Dosage: UNK, 4X/DAY
  11. REGORAFENIB [Suspect]
     Active Substance: REGORAFENIB
     Dosage: UNK, 3X/DAY
  12. CLEOCIN T [Concomitant]
     Active Substance: CLINDAMYCIN PHOSPHATE
     Indication: Rash
     Dosage: UNK, 2X/DAY, APPLY 1 APPLICATION TO AFFECTED AREA 2 TIMES A DAY AS NEEDED (FIRST CHOICE) (LOTION)
     Route: 061
     Dates: start: 20240130
  13. VIBRAMYCIN [Concomitant]
     Active Substance: DOXYCYCLINE
     Indication: Acne
     Dosage: 100 MG, 2X/DAY (TAKE 1 CAPSULE (100 MG) TWICE DAILY)
     Route: 048
     Dates: start: 20240717

REACTIONS (2)
  - Fatigue [Unknown]
  - Insomnia [Not Recovered/Not Resolved]

NARRATIVE: CASE EVENT DATE: 20240101
